FAERS Safety Report 24275619 (Version 1)
Quarter: 2024Q3

REPORT INFORMATION
  Report Type: Spontaneous
  Country: US (occurrence: US)
  Receive Date: 20240903
  Receipt Date: 20240903
  Transmission Date: 20241016
  Serious: No
  Sender: MERCK
  Company Number: US-009507513-2408USA006740

PATIENT
  Sex: Female
  Weight: 73.5 kg

DRUGS (23)
  1. WINREVAIR [Suspect]
     Active Substance: SOTATERCEPT-CSRK
  2. TYVASO DPI [Suspect]
     Active Substance: TREPROSTINIL
     Indication: Pulmonary arterial hypertension
     Dosage: 64 MICROGRAM, QID
     Dates: start: 20221222
  3. IBUPROFEN [Concomitant]
     Active Substance: IBUPROFEN
  4. FERRIC POLYSACCHARIDE COMPLEX [Concomitant]
     Active Substance: FERRIC POLYSACCHARIDE COMPLEX
  5. EXCEDRIN MIGRAINE [Concomitant]
     Active Substance: ACETAMINOPHEN\ASPIRIN\CAFFEINE
  6. FOLIC ACID [Concomitant]
     Active Substance: FOLIC ACID
  7. OPSUMIT [Concomitant]
     Active Substance: MACITENTAN
  8. TADALAFIL [Concomitant]
     Active Substance: TADALAFIL
  9. ECOTRIN [Concomitant]
     Active Substance: ASPIRIN
  10. VITAMIN E\VITAMINS [Concomitant]
     Active Substance: .ALPHA.-TOCOPHEROL\VITAMINS
  11. CALCIUM [Concomitant]
     Active Substance: CALCIUM
  12. POLYETHYLENE GLYCOLS [Concomitant]
     Active Substance: POLYETHYLENE GLYCOLS
  13. ZYRTEC [Concomitant]
     Active Substance: CETIRIZINE HYDROCHLORIDE
  14. METOPROLOL SUCCINATE [Concomitant]
     Active Substance: METOPROLOL SUCCINATE
  15. DILTIAZEM [Concomitant]
     Active Substance: DILTIAZEM
  16. ATORVASTATIN CALCIUM [Concomitant]
     Active Substance: ATORVASTATIN CALCIUM
  17. OXYGEN [Concomitant]
     Active Substance: OXYGEN
  18. DEXILANT [Concomitant]
     Active Substance: DEXLANSOPRAZOLE
  19. ESTRACE [Concomitant]
     Active Substance: ESTRADIOL
  20. PLAVIX [Concomitant]
     Active Substance: CLOPIDOGREL BISULFATE
  21. RANEXA [Concomitant]
     Active Substance: RANOLAZINE
  22. METFORMIN HYDROCHLORIDE [Concomitant]
     Active Substance: METFORMIN HYDROCHLORIDE
  23. FERROUS SULFATE [Concomitant]
     Active Substance: FERROUS SULFATE

REACTIONS (1)
  - Epistaxis [Not Recovered/Not Resolved]
